FAERS Safety Report 8476968-3 (Version None)
Quarter: 2012Q2

REPORT INFORMATION
  Report Type: 
  Country: None (occurrence: None)
  Receive Date: 20120629
  Receipt Date: 20120621
  Transmission Date: 20120825
  Serious: No
  Sender: FDA-Public Use
  Company Number: US-BIOGENIDEC-2012BI022499

PATIENT
  Age: 29 Year
  Sex: Female

DRUGS (2)
  1. AVONEX [Concomitant]
     Indication: MULTIPLE SCLEROSIS
     Route: 030
     Dates: start: 20100701
  2. TYSABRI [Suspect]
     Indication: MULTIPLE SCLEROSIS
     Route: 042
     Dates: start: 20110715, end: 20111014

REACTIONS (7)
  - FATIGUE [None]
  - HYPOAESTHESIA [None]
  - URINARY INCONTINENCE [None]
  - PRIMARY PROGRESSIVE MULTIPLE SCLEROSIS [None]
  - MUSCULAR WEAKNESS [None]
  - BALANCE DISORDER [None]
  - INSOMNIA [None]
